FAERS Safety Report 7486218-2 (Version None)
Quarter: 2011Q2

REPORT INFORMATION
  Report Type: 
  Country: None (occurrence: None)
  Receive Date: 20110517
  Receipt Date: 20110124
  Transmission Date: 20111010
  Serious: No
  Sender: FDA-Public Use
  Company Number: A0909955A

PATIENT
  Age: 55 Year
  Sex: Female
  Weight: 70.5 kg

DRUGS (10)
  1. TRAMADOL HCL [Concomitant]
  2. METOPROLOL SUCCINATE [Concomitant]
  3. ALPRAZOLAM [Concomitant]
  4. VOTRIENT [Suspect]
     Dosage: 800MG PER DAY
     Route: 048
     Dates: start: 20110117
  5. LEVOTHYROXINE SODIUM [Concomitant]
  6. METFORMIN HCL [Concomitant]
  7. VALACYCLOVIR [Concomitant]
  8. ZOLPIDEM [Concomitant]
  9. CLARITIN [Concomitant]
  10. VITAMIN D [Concomitant]

REACTIONS (8)
  - ABDOMINAL DISCOMFORT [None]
  - VOMITING [None]
  - GASTROOESOPHAGEAL REFLUX DISEASE [None]
  - WEIGHT DECREASED [None]
  - NAUSEA [None]
  - FATIGUE [None]
  - DIARRHOEA [None]
  - DYSGEUSIA [None]
